FAERS Safety Report 12892116 (Version 3)
Quarter: 2017Q1

REPORT INFORMATION
  Report Type: Report from Study
  Country: DE (occurrence: DE)
  Receive Date: 20161028
  Receipt Date: 20170124
  Transmission Date: 20170428
  Serious: Yes (Death, Hospitalization, Other)
  Sender: FDA-Public Use
  Company Number: DE-ROCHE-1845121

PATIENT
  Age: 49 Year
  Sex: Female
  Weight: 62 kg

DRUGS (8)
  1. OBINUTUZUMAB [Suspect]
     Active Substance: OBINUTUZUMAB
     Indication: DIFFUSE LARGE B-CELL LYMPHOMA
     Dosage: LAST DOSE PRIOR TO SAE: 25/OCT/2016.
     Route: 042
     Dates: start: 20161007
  2. PIXANTRONE [Suspect]
     Active Substance: PIXANTRONE
     Indication: DIFFUSE LARGE B-CELL LYMPHOMA
     Dosage: LAST DOSE PRIOR TO SAE: 25/OCT/2016.
     Route: 065
     Dates: start: 20161007
  3. PALLADON [Concomitant]
     Active Substance: HYDROMORPHONE
     Dosage: DAILY DOSE: 1.3-5.2 MG IF NECESSARY
     Route: 065
     Dates: start: 20161014
  4. OBINUTUZUMAB [Suspect]
     Active Substance: OBINUTUZUMAB
     Route: 042
     Dates: start: 20161007, end: 20161008
  5. PALLADON [Concomitant]
     Active Substance: HYDROMORPHONE
     Route: 065
     Dates: start: 20161019, end: 20161020
  6. AMOXICILLIN SODIUM/CLAVULANATE POTASSIUM [Concomitant]
     Active Substance: AMOXICILLIN\CLAVULANATE POTASSIUM
     Dosage: 875/125 MG
     Route: 065
     Dates: start: 20161020
  7. STEROFUNDIN [Concomitant]
     Active Substance: CALCIUM CHLORIDE\MAGNESIUM CHLORIDE\POTASSIUM CHLORIDE\SODIUM ACETATE\SODIUM CHLORIDE
     Route: 065
     Dates: start: 20161019, end: 20161020
  8. PARACETAMOL [Concomitant]
     Active Substance: ACETAMINOPHEN
     Route: 065
     Dates: start: 20161018

REACTIONS (6)
  - Neutrophil count decreased [Recovered/Resolved]
  - Lymphoma [Fatal]
  - Thrombocytopenia [Recovered/Resolved]
  - Leukopenia [Recovered/Resolved]
  - Pyrexia [Recovered/Resolved]
  - Cancer pain [Unknown]

NARRATIVE: CASE EVENT DATE: 20161011
